FAERS Safety Report 5000510-2 (Version None)
Quarter: 2006Q2

REPORT INFORMATION
  Report Type: 
  Country: None (occurrence: None)
  Receive Date: 20060512
  Receipt Date: 20060306
  Transmission Date: 20061013
  Serious: Yes (Hospitalization, Other)
  Sender: FDA-Public Use
  Company Number: 2006UW03731

PATIENT
  Age: 56 Year
  Sex: Male
  Weight: 71.8 kg

DRUGS (3)
  1. CRESTOR [Suspect]
     Indication: BLOOD CHOLESTEROL INCREASED
     Route: 048
     Dates: start: 20051101, end: 20051101
  2. INHIBACE [Concomitant]
     Route: 048
     Dates: start: 20040101
  3. LIPITOR [Concomitant]

REACTIONS (5)
  - AORTIC THROMBOSIS [None]
  - BLOOD CREATINE PHOSPHOKINASE INCREASED [None]
  - MUSCULAR WEAKNESS [None]
  - MYALGIA [None]
  - RHABDOMYOLYSIS [None]
